FAERS Safety Report 8800495 (Version 2)
Quarter: 2012Q4

REPORT INFORMATION
  Report Type: 
  Country: US (occurrence: US)
  Receive Date: 20120921
  Receipt Date: 20121010
  Transmission Date: 20130627
  Serious: Yes (Other)
  Sender: FDA-Public Use
  Company Number: PHEH2012US018326

PATIENT
  Sex: Female

DRUGS (8)
  1. DIOVAN HCT [Suspect]
     Indication: HYPERTENSION
     Dosage: 1 DF, QD(vals 160 mg and hctz 25 mg)
  2. LEVOTHYROXINE [Suspect]
  3. SITAGLIPTIN [Suspect]
  4. JANUVIA [Concomitant]
     Dosage: 100 mg, QD
  5. SYNTHROID [Concomitant]
     Dosage: 50 mg, QD
  6. SIMVASTATIN [Concomitant]
  7. ALPRAZOLAM [Concomitant]
  8. FUROSEMIDE [Concomitant]

REACTIONS (3)
  - Thyroid disorder [Unknown]
  - Diabetes mellitus [Unknown]
  - Malaise [Unknown]
